FAERS Safety Report 4314959-4 (Version None)
Quarter: 2004Q1

REPORT INFORMATION
  Report Type: 
  Country: None (occurrence: None)
  Receive Date: 20040309
  Receipt Date: 20040224
  Transmission Date: 20041129
  Serious: Yes (Hospitalization)
  Sender: FDA-Public Use
  Company Number: US-JNJFOC-20040206000

PATIENT
  Age: 68 Year
  Sex: Female
  Weight: 89.8122 kg

DRUGS (16)
  1. INFLIXIMAB (INFLIXIMAB, RECOMBINANT) LYOPHILIZED POWDER [Suspect]
     Indication: RHEUMATOID ARTHRITIS
     Dosage: INTRAVENOUS
     Route: 042
     Dates: start: 20020805
  2. LIPITOR [Concomitant]
  3. ADALAT [Concomitant]
  4. PAMELOR [Concomitant]
  5. NITROGLYCERIN [Concomitant]
  6. FOLIC ACID [Concomitant]
  7. NEURONTIN [Concomitant]
  8. MIACALCIN [Concomitant]
  9. MAGNESIUM (MAGNESIUM) [Concomitant]
  10. CALCIUM PLUS D (CALCIUM) [Concomitant]
  11. ACTONEL [Concomitant]
  12. LASIX [Concomitant]
  13. ZYDONE (VICODIN) [Concomitant]
  14. METHOTREXATE [Concomitant]
  15. ASPIRIN [Concomitant]
  16. VIOXX [Concomitant]

REACTIONS (2)
  - CORONARY ARTERY DISEASE [None]
  - HYPOGLYCAEMIA [None]
